FAERS Safety Report 4849594-2 (Version None)
Quarter: 2005Q4

REPORT INFORMATION
  Report Type: 
  Country: None (occurrence: None)
  Receive Date: 20051207
  Receipt Date: 20051128
  Transmission Date: 20060501
  Serious: Yes (Life-Threatening, Hospitalization)
  Sender: FDA-Public Use
  Company Number: 2005EU001272

PATIENT
  Age: 29 Year
  Sex: Female

DRUGS (8)
  1. FK506 (TACROLIMUS) CAPSULE [Suspect]
     Indication: LIVER TRANSPLANT
     Dosage: 2.00 MG, UID/QD, ORAL
     Route: 048
     Dates: start: 20040818
  2. MYCOPHENOLATE MOFETIL (MYCOPHENOLATE MOFETIL) [Suspect]
     Indication: LIVER TRANSPLANT
     Dosage: SEE IMAGE
     Dates: start: 20040818, end: 20040823
  3. MYCOPHENOLATE MOFETIL (MYCOPHENOLATE MOFETIL) [Suspect]
     Indication: LIVER TRANSPLANT
     Dosage: SEE IMAGE
     Dates: start: 20040824
  4. METHYLPREDNISOLONE [Suspect]
     Indication: LIVER TRANSPLANT
     Dosage: 500.00 MG UID/QD,
     Dates: start: 20040818
  5. PREDNISONE [Suspect]
     Indication: LIVER TRANSPLANT
     Dosage: 20.00 MG, UID/QD,
     Dates: start: 20040823
  6. FENTANYL [Concomitant]
  7. ATRACURIUM BESYLATE [Concomitant]
  8. THIOPENTON-NATRIUM (THIOPENTAL SODIUM) [Concomitant]

REACTIONS (3)
  - DISEASE RECURRENCE [None]
  - HEPATIC FAILURE [None]
  - HEPATITIS C [None]
